FAERS Safety Report 4383320-9 (Version None)
Quarter: 2004Q2

REPORT INFORMATION
  Report Type: 
  Country: None (occurrence: None)
  Receive Date: 20040622
  Receipt Date: 20040622
  Transmission Date: 20050107
  Serious: Yes (Hospitalization)
  Sender: FDA-Public Use
  Company Number: None

PATIENT
  Age: 29 Year
  Sex: Female

DRUGS (1)
  1. DEXAMETHASONE [Suspect]

REACTIONS (4)
  - FEBRILE NEUTROPENIA [None]
  - IMMUNOSUPPRESSION [None]
  - NORMOCHROMIC NORMOCYTIC ANAEMIA [None]
  - POSTOPERATIVE INFECTION [None]
